FAERS Safety Report 4573871-6 (Version None)
Quarter: 2005Q1

REPORT INFORMATION
  Report Type: 
  Country: None (occurrence: None)
  Receive Date: 20050203
  Receipt Date: 20050127
  Transmission Date: 20050727
  Serious: Yes (Hospitalization)
  Sender: FDA-Public Use
  Company Number: 2005UW01442

PATIENT
  Age: 74 Year
  Sex: Male
  Weight: 72.1219 kg

DRUGS (14)
  1. IRESSA [Suspect]
     Indication: PANCREATIC CARCINOMA STAGE III
     Dosage: 250 MG DAILY PO
     Route: 048
     Dates: start: 20031024
  2. RADIATION THERAPY [Suspect]
     Indication: PANCREATIC CARCINOMA STAGE III
     Dosage: 5040 GY
     Dates: start: 20031024, end: 20031212
  3. PACLITAXEL [Suspect]
     Indication: PANCREATIC CARCINOMA STAGE III
     Dosage: 71 MG WEEK
     Dates: start: 20031024, end: 20031212
  4. COUMADIN [Concomitant]
  5. COZAAR [Concomitant]
  6. TAMBOCOR [Concomitant]
  7. NEXIUM [Concomitant]
  8. GLUCOSAMINE WITH CHONDROITIN [Concomitant]
  9. PANOREA CARB MS 8 [Concomitant]
  10. ENSURE [Concomitant]
  11. SENNA [Concomitant]
  12. COMPAZINE [Concomitant]
  13. OXYCODONE HCL [Concomitant]
  14. AMBIEN [Concomitant]

REACTIONS (3)
  - ANAEMIA [None]
  - DEHYDRATION [None]
  - OEDEMA PERIPHERAL [None]
